FAERS Safety Report 15022572 (Version 1)
Quarter: 2018Q2

REPORT INFORMATION
  Report Type: Spontaneous
  Country: FR (occurrence: FR)
  Receive Date: 20180618
  Receipt Date: 20180618
  Transmission Date: 20180711
  Serious: Yes (Hospitalization, Other)
  Sender: FDA-Public Use
  Company Number: FR-SA-2018SA149619

PATIENT
  Age: 67 Year
  Sex: Female

DRUGS (1)
  1. ANTI-THYMOCYTE GLOBULIN (RABBIT) NOS [Suspect]
     Active Substance: LAPINE T-LYMPHOCYTE IMMUNE GLOBULIN
     Indication: PROPHYLAXIS AGAINST TRANSPLANT REJECTION
     Dosage: 104 MG, 1X
     Route: 042
     Dates: start: 20180331, end: 20180331

REACTIONS (1)
  - Arteriovenous fistula thrombosis [Recovering/Resolving]

NARRATIVE: CASE EVENT DATE: 20180407
